FAERS Safety Report 9088029 (Version 1)
Quarter: 2013Q1

REPORT INFORMATION
  Report Type: Spontaneous
  Country: US (occurrence: US)
  Receive Date: 20130201
  Receipt Date: 20130201
  Transmission Date: 20140127
  Serious: Yes (Other)
  Sender: FDA-Public Use
  Company Number: US-009507513-1301USA004172

PATIENT
  Age: 79 Year
  Sex: Female

DRUGS (11)
  1. MONTELUKAST SODIUM [Suspect]
     Indication: ASTHMA
     Dosage: 10 MG, UNK
     Route: 048
  2. LIPITOR [Suspect]
     Indication: BLOOD CHOLESTEROL INCREASED
     Dosage: 10 MG, QD
  3. PROTONIX [Concomitant]
  4. SYMBICORT [Concomitant]
  5. VITAMINS (UNSPECIFIED) [Concomitant]
  6. CALCIUM (UNSPECIFIED) [Concomitant]
  7. PLAVIX [Concomitant]
     Dosage: 75 MG, UNK
  8. PREVACID [Concomitant]
  9. ADVAIR [Concomitant]
  10. PLENDIL [Concomitant]
  11. LISINOPRIL [Concomitant]
     Indication: HYPERTENSION
     Dosage: 10 MG, UNK

REACTIONS (8)
  - Withdrawal syndrome [Unknown]
  - Vomiting [Unknown]
  - Nausea [Unknown]
  - Myalgia [Unknown]
  - Lipids abnormal [Unknown]
  - Diarrhoea [Unknown]
  - Blood pressure increased [Unknown]
  - Blood cholesterol increased [Unknown]
